FAERS Safety Report 6050072-6 (Version None)
Quarter: 2009Q1

REPORT INFORMATION
  Report Type: 
  Country: None (occurrence: None)
  Receive Date: 20090121
  Receipt Date: 20090105
  Transmission Date: 20090719
  Serious: Yes (Other)
  Sender: FDA-Public Use
  Company Number: JPI-P-005743

PATIENT
  Age: 68 Year
  Sex: Female
  Weight: 92.9874 kg

DRUGS (14)
  1. XYREM [Suspect]
     Indication: CATAPLEXY
     Dosage: SEE IMAGE
     Route: 048
     Dates: start: 20081027, end: 20081222
  2. XYREM [Suspect]
     Indication: NARCOLEPSY
     Dosage: SEE IMAGE
     Route: 048
     Dates: start: 20081027, end: 20081222
  3. XYREM [Suspect]
     Indication: CATAPLEXY
     Dosage: SEE IMAGE
     Route: 048
     Dates: start: 20081222, end: 20090101
  4. XYREM [Suspect]
     Indication: NARCOLEPSY
     Dosage: SEE IMAGE
     Route: 048
     Dates: start: 20081222, end: 20090101
  5. XYREM [Suspect]
     Indication: CATAPLEXY
     Dosage: SEE IMAGE
     Route: 048
     Dates: start: 20090102
  6. XYREM [Suspect]
     Indication: NARCOLEPSY
     Dosage: SEE IMAGE
     Route: 048
     Dates: start: 20090102
  7. PAROXETINE HCL [Concomitant]
  8. WARFARIN SODIUM [Concomitant]
  9. AZATHIROPRINE [Concomitant]
  10. MULTI-VITAMIN [Concomitant]
  11. FIUROSEMIDE [Concomitant]
  12. SPIRONOLACTONE [Concomitant]
  13. UNSPECIFIED NARCOLEPSY MEDICATION [Concomitant]
  14. UNSPECIFIED MEDICATION [Concomitant]

REACTIONS (3)
  - FALL [None]
  - HAND FRACTURE [None]
  - SOMNOLENCE [None]
